FAERS Safety Report 24703769 (Version 1)
Quarter: 2024Q4

REPORT INFORMATION
  Report Type: Spontaneous
  Country: US (occurrence: US)
  Receive Date: 20241206
  Receipt Date: 20241206
  Transmission Date: 20250115
  Serious: No
  Sender: AUROBINDO
  Company Number: US-AUROBINDO-AUR-APL-2024-044474

PATIENT
  Age: 78 Year
  Sex: Female

DRUGS (1)
  1. MIRTAZAPINE [Suspect]
     Active Substance: MIRTAZAPINE
     Indication: Product used for unknown indication
     Dosage: UNK
     Route: 065

REACTIONS (8)
  - Asthenia [Unknown]
  - Confusional state [Unknown]
  - Decreased appetite [Unknown]
  - Fatigue [Unknown]
  - Headache [Unknown]
  - Memory impairment [Unknown]
  - Muscle spasms [Unknown]
  - Nausea [Unknown]
